FAERS Safety Report 4724359-0 (Version None)
Quarter: 2005Q3

REPORT INFORMATION
  Report Type: 
  Country: None (occurrence: None)
  Receive Date: 20050720
  Receipt Date: 20050720
  Transmission Date: 20060218
  Serious: Yes (Other)
  Sender: FDA-Public Use
  Company Number: None

PATIENT
  Age: 39 Year
  Sex: Male
  Weight: 72.1 kg

DRUGS (7)
  1. ATOVAQUONE [Suspect]
     Indication: PNEUMOCYSTIS JIROVECI PNEUMONIA
     Dosage: 1500 MG PO QD
     Route: 048
     Dates: start: 20050308, end: 20050317
  2. ATOVAQUONE [Suspect]
     Indication: PROPHYLAXIS
     Dosage: 1500 MG PO QD
     Route: 048
     Dates: start: 20050308, end: 20050317
  3. FLUCONAZOLE [Suspect]
     Indication: CANDIDIASIS
     Dosage: 100 MG PO Q 8
     Route: 048
     Dates: start: 20050311, end: 20050319
  4. CYCLOBENZAPRINE HCL [Concomitant]
  5. GABAPENTIN [Concomitant]
  6. MIRTAZAPINE [Concomitant]
  7. VALACYCLOVIR HCL [Concomitant]

REACTIONS (1)
  - ERYTHEMA MULTIFORME [None]
